FAERS Safety Report 19710633 (Version 3)
Quarter: 2021Q3

REPORT INFORMATION
  Report Type: Spontaneous
  Country: DE (occurrence: DE)
  Receive Date: 20210817
  Receipt Date: 20210920
  Transmission Date: 20211014
  Serious: Yes (Other)
  Sender: FDA-Public Use
  Company Number: NVSC2021DE179284

PATIENT
  Age: 81 Year
  Sex: Male
  Weight: 68 kg

DRUGS (4)
  1. BICALUTAMIDE. [Suspect]
     Active Substance: BICALUTAMIDE
     Indication: PRODUCT USED FOR UNKNOWN INDICATION
     Dosage: UNK
     Route: 065
  2. CYPROTERONE ACETATE [Suspect]
     Active Substance: CYPROTERONE ACETATE
     Indication: HOT FLUSH
     Dosage: 1 DF, QW
     Route: 065
     Dates: start: 20160913
  3. PROFACT [Suspect]
     Active Substance: BUSERELIN ACETATE
     Indication: PRODUCT USED FOR UNKNOWN INDICATION
     Dosage: UNK (DEPOT)
     Route: 058
     Dates: start: 2015
  4. BUSERELIN [Suspect]
     Active Substance: BUSERELIN
     Indication: PROSTATE CANCER
     Dosage: UNK, REPORTED AS PROFACT DEPOT 3 MONTH IMPLANT
     Route: 058
     Dates: start: 20150914, end: 20210429

REACTIONS (1)
  - Pulmonary fibrosis [Not Recovered/Not Resolved]
